FAERS Safety Report 4556759-6 (Version None)
Quarter: 2005Q1

REPORT INFORMATION
  Report Type: 
  Country: None (occurrence: None)
  Receive Date: 20050105
  Receipt Date: 20040414
  Transmission Date: 20050727
  Serious: Yes (Disabling)
  Sender: FDA-Public Use
  Company Number: WAES 0404USA01486

PATIENT
  Age: 87 Year
  Sex: Female

DRUGS (4)
  1. NOROXIN [Suspect]
     Indication: INFECTION
     Dosage: 400 MG/BID/PO
     Route: 048
     Dates: start: 20040331, end: 20040405
  2. CARDIZEM [Concomitant]
  3. LASIX [Concomitant]
  4. GASTROINTESTINAL PREPARATIONS [Concomitant]

REACTIONS (1)
  - ARTHRALGIA [None]
